FAERS Safety Report 19742234 (Version 1)
Quarter: 2021Q3

REPORT INFORMATION
  Report Type: Report from Study
  Country: CO (occurrence: CO)
  Receive Date: 20210825
  Receipt Date: 20210825
  Transmission Date: 20211014
  Serious: Yes (Hospitalization)
  Sender: FDA-Public Use
  Company Number: NVSC2021CO174304

PATIENT
  Age: 4 Year
  Sex: Male
  Weight: 20 kg

DRUGS (8)
  1. ILARIS [Suspect]
     Active Substance: CANAKINUMAB
     Dosage: 145 MG, QMO
     Route: 058
  2. DIPIRONE [Concomitant]
     Active Substance: METAMIZOLE SODIUM
     Indication: PRODUCT USED FOR UNKNOWN INDICATION
     Dosage: UNK
     Route: 042
  3. ILARIS [Suspect]
     Active Substance: CANAKINUMAB
     Dosage: 75 MG, EVERY 60 DAYS
     Route: 058
  4. ILARIS [Suspect]
     Active Substance: CANAKINUMAB
     Dosage: 100 MG
     Route: 058
  5. ILARIS [Suspect]
     Active Substance: CANAKINUMAB
     Dosage: 150 MG, EVERY 60 DAYS
     Route: 058
  6. PREDNISOLONE. [Concomitant]
     Active Substance: PREDNISOLONE
     Indication: PYREXIA
     Dosage: 5 MG, Q24H
     Route: 048
  7. ILARIS [Suspect]
     Active Substance: CANAKINUMAB
     Indication: PYREXIA
     Dosage: 70 MG
     Route: 058
  8. ENALAPRIL [Concomitant]
     Active Substance: ENALAPRIL
     Indication: HYPERTENSION
     Dosage: 5 MG, Q24H
     Route: 048

REACTIONS (10)
  - Arthralgia [Unknown]
  - Immunosuppression [Unknown]
  - Asthenia [Unknown]
  - Blood pressure increased [Unknown]
  - Disease progression [Unknown]
  - Incorrect dose administered [Unknown]
  - Wrong technique in product usage process [Unknown]
  - Pyrexia [Unknown]
  - Bone pain [Unknown]
  - Vomiting [Unknown]

NARRATIVE: CASE EVENT DATE: 20210729
